FAERS Safety Report 7074196-X (Version None)
Quarter: 2010Q4

REPORT INFORMATION
  Report Type: 
  Country: None (occurrence: None)
  Receive Date: 20101020
  Receipt Date: 20101012
  Transmission Date: 20110411
  Serious: Yes (Hospitalization, Other)
  Sender: FDA-Public Use
  Company Number: 2010SP055066

PATIENT
  Sex: Female

DRUGS (4)
  1. PEG-INTRON [Suspect]
     Indication: THROMBOSIS PROPHYLAXIS
     Dates: start: 20100126, end: 20100401
  2. PEG-INTRON [Suspect]
     Indication: THROMBOSIS PROPHYLAXIS
     Dates: start: 20100909
  3. RIBAVIRIN [Suspect]
     Indication: HEPATITIS C
     Dates: start: 20100126, end: 20100401
  4. RIBAVIRIN [Suspect]
     Indication: HEPATITIS C
     Dates: start: 20100909

REACTIONS (5)
  - BONE PAIN [None]
  - MALAISE [None]
  - ORAL CANDIDIASIS [None]
  - PAIN [None]
  - VASCULAR OCCLUSION [None]
